FAERS Safety Report 10528124 (Version 3)
Quarter: 2015Q1

REPORT INFORMATION
  Report Type: Spontaneous
  Country: US (occurrence: US)
  Receive Date: 20141020
  Receipt Date: 20150127
  Transmission Date: 20150720
  Serious: Yes (Hospitalization, Other)
  Sender: FDA-Public Use
  Company Number: US-BAYER-2014-154426

PATIENT
  Age: 25 Year
  Sex: Female
  Weight: 58.96 kg

DRUGS (6)
  1. ASPIRIN. [Concomitant]
     Active Substance: ASPIRIN
     Indication: TOOTH FRACTURE
  2. MIDOL [CAFFEINE,MEPYRAMINE MALEATE,PARACETAMOL] [Concomitant]
  3. PEPCID [Concomitant]
     Active Substance: FAMOTIDINE
  4. TUMS [CALCIUM CARBONATE,MAGNESIUM CARBONATE] [Concomitant]
  5. ASPIRIN. [Concomitant]
     Active Substance: ASPIRIN
     Indication: DYSPEPSIA
     Dosage: UNK
     Dates: start: 20091025
  6. MIRENA [Suspect]
     Active Substance: LEVONORGESTREL
     Indication: CONTRACEPTION
     Dosage: 20 MCG/24HR, CONT
     Route: 015
     Dates: start: 20080513, end: 20091026

REACTIONS (12)
  - Emotional distress [None]
  - Device dislocation [None]
  - Depression postoperative [None]
  - Drug ineffective [None]
  - Anxiety [None]
  - Ovarian cyst [None]
  - Abortion spontaneous [None]
  - Injury [None]
  - Pain [None]
  - Pregnancy with contraceptive device [None]
  - Abdominal pain lower [None]
  - Fear [None]

NARRATIVE: CASE EVENT DATE: 2009
